FAERS Safety Report 4722275-1 (Version None)
Quarter: 2005Q3

REPORT INFORMATION
  Report Type: 
  Country: None (occurrence: None)
  Receive Date: 20050722
  Receipt Date: 20041001
  Transmission Date: 20060218
  Serious: No
  Sender: FDA-Public Use
  Company Number: US-GLAXOSMITHKLINE-A0528137A

PATIENT
  Age: 54 Year
  Sex: Female

DRUGS (10)
  1. AVANDIA [Suspect]
     Dosage: 4MG PER DAY
     Route: 048
     Dates: start: 20040816
  2. REGULAR INSULIN [Concomitant]
  3. NPH INSULIN [Concomitant]
  4. VERELAN [Concomitant]
  5. UNKNOWN MEDICATION [Concomitant]
     Route: 065
  6. LIPITOR [Concomitant]
  7. LASIX [Concomitant]
  8. NAPROXEN SODIUM [Concomitant]
  9. COMBIVENT [Concomitant]
  10. RHINOCORT [Concomitant]

REACTIONS (4)
  - NASAL CONGESTION [None]
  - PHARYNGOLARYNGEAL PAIN [None]
  - SINUSITIS [None]
  - UPPER RESPIRATORY TRACT INFECTION [None]
